FAERS Safety Report 17348630 (Version 1)
Quarter: 2020Q1

REPORT INFORMATION
  Report Type: Spontaneous
  Country: US (occurrence: US)
  Receive Date: 20200129
  Receipt Date: 20200129
  Transmission Date: 20200409
  Serious: No
  Sender: FDA-Public Use
  Company Number: US-EXELIXIS-CABO-19024312

PATIENT
  Sex: Male

DRUGS (2)
  1. CABOMETYX [Suspect]
     Active Substance: CABOZANTINIB S-MALATE
     Dosage: HALF DOSE OF 30 MG ON DIALYSIS DAY VIA SPLITTING AND 60 MG ON NON-DIALYSIS DAYS
     Route: 048
  2. CABOMETYX [Suspect]
     Active Substance: CABOZANTINIB S-MALATE
     Indication: RENAL CELL CARCINOMA
     Dosage: 60 MG, QD
     Route: 048

REACTIONS (4)
  - Wrong technique in product usage process [Unknown]
  - Stomatitis [Unknown]
  - Pyrexia [Not Recovered/Not Resolved]
  - Drug intolerance [Unknown]
